FAERS Safety Report 17992864 (Version 1)
Quarter: 2020Q3

REPORT INFORMATION
  Report Type: Spontaneous
  Country: US (occurrence: US)
  Receive Date: 20200708
  Receipt Date: 20200708
  Transmission Date: 20201103
  Serious: No
  Sender: FDA-Public Use
  Company Number: US-GLAXOSMITHKLINE-US2020116541

PATIENT
  Age: 85 Year
  Sex: Female

DRUGS (1)
  1. FLONASE ALLERGY RELIEF [Suspect]
     Active Substance: FLUTICASONE PROPIONATE
     Indication: HYPERSENSITIVITY
     Dosage: UNK (2 SPRAY EACH NOSTRIL AND 1 SPRAY EACH NOSTRIL)
     Dates: start: 20200609, end: 20200620

REACTIONS (6)
  - Headache [Unknown]
  - Sinus headache [Unknown]
  - Drug intolerance [Unknown]
  - Incorrect dose administered [Unknown]
  - Visual impairment [Unknown]
  - Blister [Unknown]

NARRATIVE: CASE EVENT DATE: 20200609
